FAERS Safety Report 9863683 (Version 2)
Quarter: 2014Q1

REPORT INFORMATION
  Report Type: Spontaneous
  Country: US (occurrence: US)
  Receive Date: 20140203
  Receipt Date: 20140203
  Transmission Date: 20141002
  Serious: No
  Sender: FDA-Public Use
  Company Number: US-GILEAD-2013-0078423

PATIENT
  Sex: Male

DRUGS (2)
  1. CAYSTON [Suspect]
     Indication: PRODUCT USED FOR UNKNOWN INDICATION
     Dosage: 75 MG, UNK
     Route: 055
  2. ALBUTEROL                          /00139501/ [Concomitant]
     Indication: PREMEDICATION

REACTIONS (3)
  - Forced expiratory volume decreased [Unknown]
  - Bronchospasm [Unknown]
  - Chest discomfort [Unknown]
